FAERS Safety Report 10009689 (Version 2)
Quarter: 2014Q1

REPORT INFORMATION
  Report Type: Spontaneous
  Country: US (occurrence: US)
  Receive Date: 20140312
  Receipt Date: 20140312
  Transmission Date: 20141002
  Serious: Yes (Other)
  Sender: FDA-Public Use
  Company Number: US-INCYTE CORPORATION-2012IN001216

PATIENT
  Age: 75 Year
  Sex: Male
  Weight: 103.86 kg

DRUGS (11)
  1. JAKAFI [Suspect]
     Indication: MYELOFIBROSIS
     Dosage: 5 MG, QD
     Route: 048
     Dates: start: 20120425, end: 20120829
  2. JAKAFI [Suspect]
     Dosage: 5 MG, QD
     Route: 048
     Dates: start: 2012
  3. PROCRIT [Concomitant]
     Dosage: UNK, QOW
  4. CARVEDILOL [Concomitant]
     Dosage: 3.125 MG, BID
  5. PROTONIX [Concomitant]
     Dosage: 40 MG, QD
  6. ENALAPRIL [Concomitant]
     Dosage: 2.5 MG, QD
  7. FUROSEMIDE [Concomitant]
     Dosage: 20 MG, QD
  8. POTASSIUM [Concomitant]
     Dosage: 10 MEQ, QD
  9. SOTALOL [Concomitant]
     Dosage: 80 MG, BID
  10. OMEGA 3 FISH OIL [Concomitant]
  11. IRON [Concomitant]
     Indication: MINERAL SUPPLEMENTATION

REACTIONS (1)
  - Platelet count decreased [Recovered/Resolved]
